FAERS Safety Report 7775404-X (Version None)
Quarter: 2011Q3

REPORT INFORMATION
  Report Type: 
  Country: None (occurrence: None)
  Receive Date: 20110923
  Receipt Date: 20110911
  Transmission Date: 20111222
  Serious: Yes (Other)
  Sender: FDA-Public Use
  Company Number: PHHY2011BR81294

PATIENT
  Age: 24 Year
  Sex: Female
  Weight: 48.1 kg

DRUGS (8)
  1. CHLORTHALIDONE [Concomitant]
     Dosage: 25 MG, QD
  2. ALLOPURINOL [Concomitant]
     Dosage: 100 MG, QD
  3. AMLODIPINE [Concomitant]
     Dosage: 10 MG, QD
  4. SIMVASTATIN [Concomitant]
     Dosage: 20 MG, QD
  5. RASILEZ [Suspect]
     Dosage: 150 MG, QD
     Dates: start: 20090601
  6. LOSARTAN POTASSIUM [Concomitant]
     Dosage: 100 MG, QD
  7. RASILEZ [Suspect]
     Dosage: 300 MG, QD
     Dates: start: 20090713
  8. FUROSEMIDE [Concomitant]
     Dosage: 120 MG, QD

REACTIONS (4)
  - BLOOD PRESSURE DECREASED [None]
  - PROTEINURIA [None]
  - GLYCOSYLATED HAEMOGLOBIN INCREASED [None]
  - BLOOD CREATININE INCREASED [None]
